FAERS Safety Report 10588853 (Version 1)
Quarter: 2014Q4

REPORT INFORMATION
  Report Type: Spontaneous
  Country: US (occurrence: US)
  Receive Date: 20141117
  Receipt Date: 20141117
  Transmission Date: 20150529
  Serious: No
  Sender: FDA-Public Use
  Company Number: US-GILEAD-2014-0122344

PATIENT
  Age: 75 Year
  Sex: Female

DRUGS (13)
  1. TRILIPIX [Concomitant]
     Active Substance: FENOFIBRIC ACID
  2. LETAIRIS [Suspect]
     Active Substance: AMBRISENTAN
     Indication: PULMONARY HYPERTENSION
     Dosage: 10 MG, QD
     Route: 065
     Dates: start: 20121115, end: 20141013
  3. LETAIRIS [Suspect]
     Active Substance: AMBRISENTAN
     Indication: SYSTEMIC SCLEROSIS
  4. CALCIUM W/VITAMIN D NOS [Concomitant]
     Active Substance: CALCIUM\VITAMIN D
  5. LYRICA [Concomitant]
     Active Substance: PREGABALIN
  6. COENZYME Q10 [Concomitant]
     Active Substance: UBIDECARENONE
  7. VITAMIN B12 NOS [Concomitant]
  8. PANTOPRAZOLE [Concomitant]
     Active Substance: PANTOPRAZOLE SODIUM
  9. LOSARTAN [Concomitant]
     Active Substance: LOSARTAN
  10. ADCIRCA [Suspect]
     Active Substance: TADALAFIL
     Indication: PULMONARY HYPERTENSION
     Dates: start: 20140510, end: 20141013
  11. PAXIL [Concomitant]
     Active Substance: PAROXETINE HYDROCHLORIDE
  12. COREG [Concomitant]
     Active Substance: CARVEDILOL
  13. GENTLE IRON [Concomitant]

REACTIONS (4)
  - No therapeutic response [Unknown]
  - Visual impairment [Unknown]
  - Drug ineffective [Unknown]
  - Anaemia [Unknown]
